FAERS Safety Report 9644009 (Version 1)
Quarter: 2013Q4

REPORT INFORMATION
  Report Type: Spontaneous
  Country: DE (occurrence: None)
  Receive Date: 20131023
  Receipt Date: 20131023
  Transmission Date: 20140711
  Serious: Yes (Other)
  Sender: FDA-Public Use
  Company Number: 1310-1308

PATIENT
  Age: 79 Year
  Sex: Female

DRUGS (5)
  1. EYLEA [Suspect]
     Indication: AGE-RELATED MACULAR DEGENERATION
     Dates: start: 201304
  2. ASPIRIN [Suspect]
     Dates: start: 2010
  3. MADOPAR (MADOPAR) [Concomitant]
  4. VITAMIN D (ERGOCALCIFEROL) [Concomitant]
  5. CRANBERRY JUICE (VACCINUM MACROCARPON [Concomitant]

REACTIONS (6)
  - Crying [None]
  - Headache [None]
  - Eye haemorrhage [None]
  - Drug effect decreased [None]
  - Injection site haemorrhage [None]
  - Shock [None]
